FAERS Safety Report 20561025 (Version 2)
Quarter: 2022Q1

REPORT INFORMATION
  Report Type: Report from Study
  Country: TW (occurrence: TW)
  Receive Date: 20220307
  Receipt Date: 20220308
  Transmission Date: 20220423
  Serious: Yes (Death, Other)
  Sender: FDA-Public Use
  Company Number: TW-IPSEN Group, Research and Development-2022-05792

PATIENT

DRUGS (3)
  1. IRINOTECAN HYDROCHLORIDE [Suspect]
     Active Substance: IRINOTECAN HYDROCHLORIDE
     Indication: Ductal adenocarcinoma of pancreas
     Dosage: 80MG/M2 , OVER 90 MINUTES
     Route: 042
  2. LEUCOVORIN [Suspect]
     Active Substance: LEUCOVORIN
     Indication: Ductal adenocarcinoma of pancreas
     Dosage: 400MG/M2 OVER 30 MIN
     Route: 042
  3. FLUOROURACIL [Suspect]
     Active Substance: FLUOROURACIL
     Indication: Ductal adenocarcinoma of pancreas
     Dosage: 2400MG/M2 OVER 46 HRS
     Route: 065

REACTIONS (5)
  - Disease progression [Fatal]
  - Anaemia [Unknown]
  - Hypokalaemia [Unknown]
  - Neutropenia [Unknown]
  - Disease progression [Unknown]
